FAERS Safety Report 5179797-1 (Version None)
Quarter: 2006Q4

REPORT INFORMATION
  Report Type: 
  Country: None (occurrence: None)
  Receive Date: 20061219
  Receipt Date: 20061211
  Transmission Date: 20070319
  Serious: Yes (Hospitalization)
  Sender: FDA-Public Use
  Company Number: NZ-MERCK-0612NZL00031

PATIENT
  Age: 76 Year
  Sex: Female

DRUGS (7)
  1. FOSAMAX [Suspect]
     Indication: OSTEOPOROSIS
     Route: 048
     Dates: start: 20050914, end: 20050929
  2. FOSAMAX [Suspect]
     Route: 048
     Dates: start: 20050804, end: 20050812
  3.  [Concomitant]
     Route: 048
  4.  [Concomitant]
     Route: 048
  5.  [Concomitant]
     Route: 048
  6.  [Concomitant]
     Route: 048
  7.  [Concomitant]
     Route: 048

REACTIONS (2)
  - EPISTAXIS [None]
  - GINGIVAL BLEEDING [None]
